FAERS Safety Report 19993151 (Version 1)
Quarter: 2021Q4

REPORT INFORMATION
  Report Type: Spontaneous
  Country: US (occurrence: US)
  Receive Date: 20211026
  Receipt Date: 20211026
  Transmission Date: 20220304
  Serious: No
  Sender: FDA-Public Use
  Company Number: US-AMGEN-USASP2021160886

PATIENT
  Sex: Female

DRUGS (3)
  1. KANJINTI [Suspect]
     Active Substance: TRASTUZUMAB-ANNS
     Indication: Breast cancer metastatic
     Dosage: 8 MG/KG,Q3WK
     Route: 065
     Dates: start: 20211014
  2. GEMCITABINE [Concomitant]
     Active Substance: GEMCITABINE
  3. CARBOPLATIN [Concomitant]
     Active Substance: CARBOPLATIN
     Dosage: UNK

REACTIONS (1)
  - Dyspnoea [Unknown]
